FAERS Safety Report 8202345-6 (Version None)
Quarter: 2012Q1

REPORT INFORMATION
  Report Type: 
  Country: None (occurrence: None)
  Receive Date: 20120312
  Receipt Date: 20110509
  Transmission Date: 20120608
  Serious: Yes (Hospitalization)
  Sender: FDA-Public Use
  Company Number: US-ABBOTT-11P-163-0722527-00

PATIENT
  Sex: Female

DRUGS (6)
  1. DEPAKOTE [Suspect]
     Indication: CONVULSION
     Dates: end: 20030101
  2. GABAPENTIN [Suspect]
     Indication: CONVULSION
     Dates: end: 20030101
  3. LAMOTRIGINE [Suspect]
     Indication: CONVULSION
     Route: 048
     Dates: start: 20010101, end: 20010101
  4. LAMICTAL [Suspect]
     Indication: CONVULSION
     Route: 048
  5. LAMICTAL [Suspect]
  6. LAMICTAL [Suspect]

REACTIONS (1)
  - CONVULSION [None]
